FAERS Safety Report 13001949 (Version 3)
Quarter: 2017Q4

REPORT INFORMATION
  Report Type: Spontaneous
  Country: US (occurrence: US)
  Receive Date: 20161206
  Receipt Date: 20171018
  Transmission Date: 20180320
  Serious: Yes (Death, Other)
  Sender: FDA-Public Use
  Company Number: US-PFIZER INC-2016558452

PATIENT
  Age: 86 Year
  Sex: Female

DRUGS (11)
  1. FUROSEMIDE. [Concomitant]
     Active Substance: FUROSEMIDE
     Dosage: UNK
  2. EPOGEN [Concomitant]
     Active Substance: ERYTHROPOIETIN
     Indication: ANAEMIA
     Dosage: UNK
  3. REVATIO [Suspect]
     Active Substance: SILDENAFIL CITRATE
     Indication: CARDIAC FAILURE CONGESTIVE
     Dosage: 40 MG, 3X/DAY
     Dates: start: 2014
  4. DEXTROSE. [Concomitant]
     Active Substance: DEXTROSE
     Dosage: UNK
  5. MIRTAZAPINE. [Concomitant]
     Active Substance: MIRTAZAPINE
     Dosage: UNK
  6. METOPROLOL. [Concomitant]
     Active Substance: METOPROLOL
     Dosage: UNK
  7. BABY ASPIRIN [Concomitant]
     Active Substance: ASPIRIN
     Dosage: UNK
  8. LISINOPRIL. [Concomitant]
     Active Substance: LISINOPRIL
     Dosage: UNK
  9. VITAMIN C [Concomitant]
     Active Substance: ASCORBIC ACID
     Dosage: UNK
  10. REVATIO [Suspect]
     Active Substance: SILDENAFIL CITRATE
     Indication: LUNG DISORDER
  11. METHIMAZOLE. [Concomitant]
     Active Substance: METHIMAZOLE
     Dosage: UNK

REACTIONS (12)
  - Hernia [Unknown]
  - Death [Fatal]
  - Product use issue [Unknown]
  - Sleep apnoea syndrome [Unknown]
  - Chronic kidney disease [Unknown]
  - Atrioventricular block complete [Unknown]
  - Pneumonia [Unknown]
  - Subdural haematoma [Unknown]
  - Goitre [Unknown]
  - Pulmonary hypertension [Unknown]
  - Atrial fibrillation [Unknown]
  - Sinus node dysfunction [Unknown]

NARRATIVE: CASE EVENT DATE: 20170619
